FAERS Safety Report 16049295 (Version 3)
Quarter: 2019Q1

REPORT INFORMATION
  Report Type: Report from Study
  Country: KR (occurrence: KR)
  Receive Date: 20190307
  Receipt Date: 20190320
  Transmission Date: 20190418
  Serious: Yes (Death, Hospitalization)
  Sender: FDA-Public Use
  Company Number: KR-PFIZER INC-2019097176

PATIENT
  Age: 73 Year
  Sex: Male
  Weight: 73.7 kg

DRUGS (16)
  1. LEUCOVORIN. [Suspect]
     Active Substance: LEUCOVORIN
     Indication: PANCREATIC CARCINOMA METASTATIC
     Dosage: UNK
     Route: 042
     Dates: start: 20190116, end: 20190213
  2. BLINDED THERAPY [Suspect]
     Active Substance: INVESTIGATIONAL PRODUCT
     Indication: PANCREATIC CARCINOMA METASTATIC
     Dosage: UNK UNK, CYCLIC
     Route: 058
     Dates: start: 20190116, end: 20190210
  3. ZOPYRIN [Concomitant]
     Dosage: UNK
     Dates: start: 20181109
  4. SMOFLIPID [Concomitant]
     Active Substance: FISH OIL\MEDIUM-CHAIN TRIGLYCERIDES\OLIVE OIL\SOYBEAN OIL
     Dosage: UNK
     Dates: start: 20190128, end: 20190211
  5. DEXAMETHASONE DISODIUM PHOSPHATE [Concomitant]
     Active Substance: DEXAMETHASONE SODIUM PHOSPHATE
     Indication: PREMEDICATION
     Dosage: UNK
     Dates: start: 20190213, end: 20190213
  6. SOLONDO [Concomitant]
     Active Substance: PREDNISOLONE
     Dosage: UNK
     Dates: start: 20181103
  7. ALOXI [Concomitant]
     Active Substance: PALONOSETRON HYDROCHLORIDE
     Indication: PREMEDICATION
     Dosage: UNK
     Dates: start: 20190213, end: 20190213
  8. ALLEGRA [Concomitant]
     Active Substance: FEXOFENADINE HYDROCHLORIDE
     Dosage: UNK
     Dates: start: 20190213, end: 20190213
  9. PHENIRAMINE [Concomitant]
     Active Substance: PHENIRAMINE
     Dosage: UNK
     Dates: start: 20190213, end: 20190213
  10. OXALIPLATIN. [Suspect]
     Active Substance: OXALIPLATIN
     Indication: PANCREATIC CARCINOMA METASTATIC
     Dosage: UNK
     Route: 042
     Dates: start: 20190116, end: 20190213
  11. 5-FU [Suspect]
     Active Substance: FLUOROURACIL
     Indication: PANCREATIC CARCINOMA METASTATIC
     Dosage: UNK
     Route: 042
     Dates: start: 20190116, end: 20190213
  12. BACLOFEN. [Concomitant]
     Active Substance: BACLOFEN
     Dosage: UNK
     Dates: start: 20190211
  13. TYLENOL 8HR [Concomitant]
     Active Substance: ACETAMINOPHEN
     Dosage: UNK
     Dates: start: 20190213, end: 20190213
  14. RABEONE [Concomitant]
     Dosage: UNK
     Dates: start: 20190213
  15. CELEBREX [Concomitant]
     Active Substance: CELECOXIB
     Dosage: UNK
     Dates: start: 20181109
  16. FOLIC ACID. [Concomitant]
     Active Substance: FOLIC ACID
     Indication: PROPHYLAXIS
     Dosage: UNK
     Dates: start: 20181109

REACTIONS (1)
  - Internal haemorrhage [Fatal]

NARRATIVE: CASE EVENT DATE: 20190212
